FAERS Safety Report 16988246 (Version 1)
Quarter: 2019Q4

REPORT INFORMATION
  Report Type: Spontaneous
  Country: GB (occurrence: GB)
  Receive Date: 20191104
  Receipt Date: 20191104
  Transmission Date: 20200122
  Serious: Yes (Death)
  Sender: FDA-Public Use
  Company Number: GB-ROCHE-2452161

PATIENT
  Age: 60 Year
  Sex: Male

DRUGS (1)
  1. TOCILIZUMAB. [Suspect]
     Active Substance: TOCILIZUMAB
     Indication: TEMPORAL ARTERITIS
     Route: 058

REACTIONS (7)
  - Headache [Fatal]
  - Night sweats [Fatal]
  - Death [Fatal]
  - Vision blurred [Fatal]
  - Chest pain [Fatal]
  - Muscular weakness [Fatal]
  - Cardiac arrest [Fatal]
